FAERS Safety Report 17327557 (Version 1)
Quarter: 2020Q1

REPORT INFORMATION
  Report Type: Spontaneous
  Country: FR (occurrence: FR)
  Receive Date: 20200127
  Receipt Date: 20200127
  Transmission Date: 20200409
  Serious: Yes (Other)
  Sender: FDA-Public Use
  Company Number: NVSC2020FR019066

PATIENT
  Age: 1 Month
  Sex: Female

DRUGS (3)
  1. CALCIUM [Suspect]
     Active Substance: CALCIUM
     Indication: FOETAL EXPOSURE DURING PREGNANCY
     Dosage: UNK (MATERNAL DOSE: 600 MG/DAY)
     Route: 064
  2. 25-HYDROXYVITAMIN D3 [Suspect]
     Active Substance: CALCIFEDIOL ANHYDROUS
     Indication: FOETAL EXPOSURE DURING PREGNANCY
     Dosage: UNK (MATERNAL DOSE: 100,000 UNITS)
     Route: 064
  3. CALCIUM [Suspect]
     Active Substance: CALCIUM
     Dosage: UNK (MATERNAL DOSE: 1G/DAY)
     Route: 064

REACTIONS (4)
  - Low birth weight baby [Unknown]
  - Osteogenesis imperfecta [Unknown]
  - Small for dates baby [Unknown]
  - Foetal exposure during pregnancy [Unknown]
